FAERS Safety Report 12136931 (Version 1)
Quarter: 2016Q1

REPORT INFORMATION
  Report Type: Spontaneous
  Country: US (occurrence: US)
  Receive Date: 20160302
  Receipt Date: 20160302
  Transmission Date: 20160526
  Serious: No
  Sender: FDA-Public Use
  Company Number: US-PERRIGO-15US004184

PATIENT
  Sex: Female

DRUGS (2)
  1. GOOD NEIGHBOR PHARMACY ANTI DIARRHEAL [Suspect]
     Active Substance: LOPERAMIDE HYDROCHLORIDE
     Indication: DIARRHOEA
     Dosage: 4 MG AFTER FIRST LOOSE STOOL, 2 MG AFTER EACH SUBSEQUENT LOOSE STOOL, QD
     Route: 048
     Dates: start: 201504, end: 20150415
  2. URIN [Concomitant]
     Indication: BLADDER DISORDER
     Dosage: UNK
     Route: 065
     Dates: start: 20150406

REACTIONS (2)
  - Incorrect drug administration duration [Recovered/Resolved]
  - Drug ineffective [Unknown]

NARRATIVE: CASE EVENT DATE: 201504
